FAERS Safety Report 23763171 (Version 8)
Quarter: 2025Q3

REPORT INFORMATION
  Report Type: Report from Study
  Country: CA (occurrence: CA)
  Receive Date: 20240419
  Receipt Date: 20250901
  Transmission Date: 20251020
  Serious: Yes (Death, Hospitalization, Other)
  Sender: SANDOZ
  Company Number: CA-002147023-NVSC2023CA026611

PATIENT
  Age: 78 Year
  Sex: Male

DRUGS (2)
  1. HYRIMOZ [Suspect]
     Active Substance: ADALIMUMAB-ADAZ
     Indication: Ankylosing spondylitis
     Route: 058
     Dates: start: 20230202
  2. HYRIMOZ [Suspect]
     Active Substance: ADALIMUMAB-ADAZ
     Dosage: 40 MG, Q2W
     Route: 058
     Dates: start: 20240403

REACTIONS (14)
  - Death [Fatal]
  - Gait disturbance [Unknown]
  - Ankylosing spondylitis [Unknown]
  - Haematoma [Unknown]
  - Respiratory tract infection viral [Unknown]
  - Infection [Unknown]
  - Cough [Unknown]
  - Initial insomnia [Unknown]
  - Blood creatinine increased [Unknown]
  - Pruritus [Unknown]
  - Dyspnoea [Unknown]
  - Influenza [Not Recovered/Not Resolved]
  - Therapy interrupted [Unknown]
  - Product administered at inappropriate site [Unknown]

NARRATIVE: CASE EVENT DATE: 20230202
